FAERS Safety Report 8232424-9 (Version None)
Quarter: 2012Q1

REPORT INFORMATION
  Report Type: 
  Country: None (occurrence: None)
  Receive Date: 20120323
  Receipt Date: 20120321
  Transmission Date: 20120608
  Serious: Yes (Hospitalization)
  Sender: FDA-Public Use
  Company Number: US-TEVA-329215USA

PATIENT
  Sex: Female

DRUGS (2)
  1. LAMOTRIGINE [Suspect]
     Indication: EPILEPSY
     Dosage: 100 MILLIGRAM;
  2. PHENYTOIN [Concomitant]

REACTIONS (5)
  - MALAISE [None]
  - DISORIENTATION [None]
  - NIGHTMARE [None]
  - HALLUCINATION [None]
  - MENTAL IMPAIRMENT [None]
